FAERS Safety Report 9563725 (Version 1)
Quarter: 2013Q3

REPORT INFORMATION
  Report Type: Spontaneous
  Country: US (occurrence: None)
  Receive Date: 20130926
  Receipt Date: 20130926
  Transmission Date: 20140515
  Serious: No
  Sender: FDA-Public Use
  Company Number: None

PATIENT
  Sex: Female
  Weight: 62.6 kg

DRUGS (6)
  1. ATROVASTATIN [Suspect]
     Indication: HYPERLIPIDAEMIA
     Dosage: 1 PILL
     Route: 048
  2. ENABLEX [Concomitant]
  3. CARTIA XL [Concomitant]
  4. NEXIUM [Concomitant]
  5. DESYREL [Concomitant]
  6. DIOVAN-HCT [Concomitant]

REACTIONS (2)
  - Arthropathy [None]
  - Unevaluable event [None]
